FAERS Safety Report 5946543-0 (Version None)
Quarter: 2008Q4

REPORT INFORMATION
  Report Type: 
  Country: None (occurrence: None)
  Receive Date: 20081110
  Receipt Date: 20081103
  Transmission Date: 20090506
  Serious: Yes (Death)
  Sender: FDA-Public Use
  Company Number: B0545374A

PATIENT
  Age: 72 Year
  Sex: Male

DRUGS (2)
  1. ARIXTRA [Suspect]
     Route: 058
     Dates: start: 20080927, end: 20080928
  2. APROVEL [Concomitant]
     Indication: HYPERTENSION
     Dates: start: 20080301

REACTIONS (6)
  - DYSPNOEA [None]
  - INFLAMMATION [None]
  - PORTAL VEIN THROMBOSIS [None]
  - PYREXIA [None]
  - SEPSIS [None]
  - TACHYPNOEA [None]
